FAERS Safety Report 10554217 (Version 1)
Quarter: 2014Q4

REPORT INFORMATION
  Report Type: Spontaneous
  Country: US (occurrence: None)
  Receive Date: 20141029
  Receipt Date: 20141029
  Transmission Date: 20150529
  Serious: Yes (Hospitalization)
  Sender: FDA-Public Use
  Company Number: None

PATIENT
  Age: 71 Year
  Sex: Male
  Weight: 76.5 kg

DRUGS (3)
  1. TOPOTECAN [Suspect]
     Active Substance: TOPOTECAN\TOPOTECAN HYDROCHLORIDE
     Indication: LUNG CANCER METASTATIC
     Route: 048
     Dates: start: 20140715, end: 20140719
  2. TOPOTECAN [Suspect]
     Active Substance: TOPOTECAN\TOPOTECAN HYDROCHLORIDE
     Indication: TONSIL CANCER
     Route: 048
     Dates: start: 20140715, end: 20140719
  3. TOPOTECAN [Suspect]
     Active Substance: TOPOTECAN\TOPOTECAN HYDROCHLORIDE
     Indication: NEUROENDOCRINE CARCINOMA
     Route: 048
     Dates: start: 20140715, end: 20140719

REACTIONS (11)
  - Mucosal inflammation [None]
  - Hypotension [None]
  - Tremor [None]
  - Diarrhoea [None]
  - Haemoglobin decreased [None]
  - Diarrhoea haemorrhagic [None]
  - Dizziness [None]
  - Fatigue [None]
  - Pancytopenia [None]
  - Tachycardia [None]
  - Haemodynamic instability [None]

NARRATIVE: CASE EVENT DATE: 20140725
